FAERS Safety Report 24284148 (Version 1)
Quarter: 2024Q3

REPORT INFORMATION
  Report Type: Spontaneous
  Country: GB (occurrence: GB)
  Receive Date: 20240905
  Receipt Date: 20240905
  Transmission Date: 20241016
  Serious: Yes (Other)
  Sender: AUROBINDO
  Company Number: GB-MHRA-WEBRADR-202408272252547000-WFVHT

PATIENT
  Age: 21 Year
  Sex: Male
  Weight: 74 kg

DRUGS (1)
  1. CLARITHROMYCIN [Suspect]
     Active Substance: CLARITHROMYCIN
     Indication: Limb injury
     Dosage: 500 MILLIGRAM
     Route: 065
     Dates: start: 20240827

REACTIONS (2)
  - Head titubation [Not Recovered/Not Resolved]
  - Flashback [Not Recovered/Not Resolved]

NARRATIVE: CASE EVENT DATE: 20240827
